FAERS Safety Report 11854685 (Version 1)
Quarter: 2015Q4

REPORT INFORMATION
  Report Type: Spontaneous
  Country: US (occurrence: US)
  Receive Date: 20151221
  Receipt Date: 20151221
  Transmission Date: 20160305
  Serious: Yes (Hospitalization, Other)
  Sender: FDA-Public Use
  Company Number: US-TEVA-612471USA

PATIENT
  Sex: Female
  Weight: 55.39 kg

DRUGS (1)
  1. ENOXAPARIN [Suspect]
     Active Substance: ENOXAPARIN
     Indication: PULMONARY EMBOLISM
     Route: 065
     Dates: start: 201509, end: 20151116

REACTIONS (8)
  - Chest discomfort [Recovered/Resolved]
  - Hypoaesthesia [Unknown]
  - Shock [Recovered/Resolved]
  - Musculoskeletal stiffness [Recovered/Resolved]
  - Paraesthesia [Recovered/Resolved]
  - Joint stiffness [Recovered/Resolved]
  - Tremor [Recovered/Resolved]
  - Haemorrhage [Recovered/Resolved]
